FAERS Safety Report 7483584-9 (Version None)
Quarter: 2011Q2

REPORT INFORMATION
  Report Type: 
  Country: None (occurrence: None)
  Receive Date: 20110517
  Receipt Date: 20110511
  Transmission Date: 20111010
  Serious: Yes (Other)
  Sender: FDA-Public Use
  Company Number: US-PFIZER INC-2004064412

PATIENT
  Sex: Female

DRUGS (8)
  1. NEURONTIN [Suspect]
     Indication: PAIN IN EXTREMITY
  2. NEURONTIN [Suspect]
     Indication: NEUROPATHY PERIPHERAL
  3. NEURONTIN [Suspect]
     Indication: DIABETIC NEUROPATHY
  4. NEURONTIN [Suspect]
     Indication: ESSENTIAL TREMOR
     Dosage: 300 MG TO 800 MG
     Dates: start: 20000101, end: 20080101
  5. NEURONTIN [Suspect]
     Indication: PARAESTHESIA
  6. NEURONTIN [Suspect]
     Indication: HYPOAESTHESIA
  7. NEURONTIN [Suspect]
     Indication: LIMB DISCOMFORT
  8. NEURONTIN [Suspect]
     Indication: ARTHRITIS

REACTIONS (12)
  - DEPRESSION [None]
  - AGGRESSION [None]
  - SUICIDE ATTEMPT [None]
  - WEIGHT INCREASED [None]
  - HALLUCINATION [None]
  - BALANCE DISORDER [None]
  - AGITATION [None]
  - EUPHORIC MOOD [None]
  - DRUG INEFFECTIVE FOR UNAPPROVED INDICATION [None]
  - ABNORMAL BEHAVIOUR [None]
  - ANGER [None]
  - THINKING ABNORMAL [None]
